FAERS Safety Report 20158906 (Version 2)
Quarter: 2021Q4

REPORT INFORMATION
  Report Type: Report from Study
  Country: CA (occurrence: CA)
  Receive Date: 20211208
  Receipt Date: 20211210
  Transmission Date: 20220303
  Serious: Yes (Hospitalization, Other)
  Sender: FDA-Public Use
  Company Number: CA-JNJFOC-20211205955

PATIENT
  Age: 6 Decade
  Sex: Female
  Weight: 88.4 kg

DRUGS (2)
  1. REMICADE [Suspect]
     Active Substance: INFLIXIMAB
     Indication: Ankylosing spondylitis
     Route: 042
     Dates: start: 20160526
  2. GABAPENTIN [Suspect]
     Active Substance: GABAPENTIN
     Indication: Neuralgia
     Route: 065

REACTIONS (16)
  - Myocarditis [Not Recovered/Not Resolved]
  - Pericarditis [Not Recovered/Not Resolved]
  - Pancreatitis chronic [Unknown]
  - Gastric neoplasm [Unknown]
  - Pneumonia [Unknown]
  - Neuralgia [Unknown]
  - Confusional state [Unknown]
  - Somnolence [Unknown]
  - Decreased appetite [Unknown]
  - Abdominal distension [Unknown]
  - Vomiting [Unknown]
  - Fall [Unknown]
  - Face injury [Unknown]
  - Swelling [Recovering/Resolving]
  - Oropharyngeal pain [Unknown]
  - Dysphagia [Unknown]

NARRATIVE: CASE EVENT DATE: 20190101
